FAERS Safety Report 4285648-X (Version None)
Quarter: 2004Q1

REPORT INFORMATION
  Report Type: 
  Country: None (occurrence: None)
  Receive Date: 20040204
  Receipt Date: 20040204
  Transmission Date: 20041129
  Serious: Yes (Other)
  Sender: FDA-Public Use
  Company Number: None

PATIENT
  Sex: Female
  Weight: 79.3795 kg

DRUGS (1)
  1. PRILOSEC [Suspect]
     Indication: GASTROOESOPHAGEAL REFLUX DISEASE
     Dosage: 1 PER DAY ORAL
     Route: 048
     Dates: start: 20040119, end: 20040122

REACTIONS (4)
  - DRY SKIN [None]
  - PHARMACEUTICAL PRODUCT COMPLAINT [None]
  - PRURITUS [None]
  - URTICARIA [None]
